FAERS Safety Report 5216469-9 (Version None)
Quarter: 2007Q1

REPORT INFORMATION
  Report Type: 
  Country: None (occurrence: None)
  Receive Date: 20070123
  Receipt Date: 20070112
  Transmission Date: 20070707
  Serious: Yes (Life-Threatening, Hospitalization, Other)
  Sender: FDA-Public Use
  Company Number: JP-MERCK-0612USA02867

PATIENT
  Age: 79 Year
  Sex: Male

DRUGS (3)
  1. PEPCID [Suspect]
     Indication: GASTRITIS
     Route: 048
     Dates: start: 20051027, end: 20061120
  2. MENESIT [Concomitant]
     Indication: PROGRESSIVE SUPRANUCLEAR PALSY
     Route: 048
     Dates: start: 20051027
  3. ALOSENN [Concomitant]
     Indication: CONSTIPATION
     Route: 065
     Dates: start: 20051027

REACTIONS (2)
  - RED BLOOD CELL COUNT DECREASED [None]
  - WHITE BLOOD CELL COUNT DECREASED [None]
